FAERS Safety Report 8985299 (Version 1)
Quarter: 2012Q4

REPORT INFORMATION
  Report Type: Report from Study
  Country: US (occurrence: US)
  Receive Date: 20121226
  Receipt Date: 20121226
  Transmission Date: 20130627
  Serious: Yes (Hospitalization, Other)
  Sender: FDA-Public Use
  Company Number: US-JNJFOC-20121209211

PATIENT
  Sex: Male

DRUGS (16)
  1. ABIRATERONE ACETATE [Suspect]
     Route: 048
  2. ABIRATERONE ACETATE [Suspect]
     Indication: PROSTATE CANCER
     Route: 048
     Dates: start: 20120224
  3. OXYMETAZOLINE HYDROCHLORIDE [Concomitant]
  4. ASPIRIN [Concomitant]
     Route: 048
  5. ATIVAN [Concomitant]
  6. PREDNISONE [Concomitant]
     Route: 048
  7. PREVACID [Concomitant]
     Route: 048
  8. CALCIUM [Concomitant]
     Route: 048
  9. VITAMIN D [Concomitant]
     Route: 048
  10. DIOVAN HCT [Concomitant]
     Route: 048
  11. BECLOMETHASONE [Concomitant]
     Route: 048
  12. FISH OIL [Concomitant]
     Route: 048
  13. MULTIVITAMINS [Concomitant]
     Route: 048
  14. PRAVASTATIN [Concomitant]
     Route: 048
  15. POTASSIUM CHLORIDE [Concomitant]
     Route: 048
  16. HYDROCODONE [Concomitant]
     Indication: PAIN
     Route: 048

REACTIONS (1)
  - Cognitive disorder [Unknown]
